FAERS Safety Report 19429590 (Version 2)
Quarter: 2021Q2

REPORT INFORMATION
  Report Type: Spontaneous
  Country: TR (occurrence: TR)
  Receive Date: 20210617
  Receipt Date: 20210629
  Transmission Date: 20210717
  Serious: Yes (Hospitalization)
  Sender: FDA-Public Use
  Company Number: TR-TEVA-2021-TR-1922476

PATIENT
  Age: 10 Year
  Sex: Female

DRUGS (10)
  1. GEMCITABINE. [Suspect]
     Active Substance: GEMCITABINE
     Indication: DESMOPLASTIC SMALL ROUND CELL TUMOUR
     Dosage: 1000 MG/M2 DAILY; ON DAYS 1, 8, 15
     Route: 065
  2. OXALIPLATIN. [Suspect]
     Active Substance: OXALIPLATIN
     Indication: DESMOPLASTIC SMALL ROUND CELL TUMOUR
     Dosage: 85 MG/M2 DAILY;
     Route: 065
  3. OXALIPLATIN. [Suspect]
     Active Substance: OXALIPLATIN
     Dosage: INTRAPERITONEAL HYPERTHERMIC CHEMOTHERAPY
     Route: 033
  4. OXALIPLATIN. [Suspect]
     Active Substance: OXALIPLATIN
     Route: 033
  5. TOPOTECAN [Suspect]
     Active Substance: TOPOTECAN HYDROCHLORIDE
     Indication: DESMOPLASTIC SMALL ROUND CELL TUMOUR
     Dosage: 2 MG/M2 DAILY;
     Route: 065
  6. SUNITINIB MALEATE. [Suspect]
     Active Substance: SUNITINIB MALEATE
     Indication: DESMOPLASTIC SMALL ROUND CELL TUMOUR
     Route: 065
  7. IRINOTECAN [Suspect]
     Active Substance: IRINOTECAN
     Indication: DESMOPLASTIC SMALL ROUND CELL TUMOUR
     Dosage: 175 MG/M2 DAILY;
     Route: 065
  8. CYCLOPHOSPHAMIDE. [Suspect]
     Active Substance: CYCLOPHOSPHAMIDE
     Indication: DESMOPLASTIC SMALL ROUND CELL TUMOUR
     Dosage: 2.1 G/M2
     Route: 065
  9. IRINOTECAN [Suspect]
     Active Substance: IRINOTECAN
     Dosage: INTRAPERITONEAL HYPERTHERMIC CHEMOTHERAPY
     Route: 033
  10. IRINOTECAN [Suspect]
     Active Substance: IRINOTECAN
     Route: 033

REACTIONS (3)
  - Hypokalaemia [Recovered/Resolved]
  - Renal tubular disorder [Recovered/Resolved]
  - Drug ineffective [Unknown]
